FAERS Safety Report 22598247 (Version 3)
Quarter: 2024Q2

REPORT INFORMATION
  Report Type: Spontaneous
  Country: US (occurrence: US)
  Receive Date: 20230614
  Receipt Date: 20240624
  Transmission Date: 20240716
  Serious: No
  Sender: FDA-Public Use
  Company Number: US-ARDELYX-2023ARDX000143

PATIENT
  Sex: Male

DRUGS (12)
  1. IBSRELA [Suspect]
     Active Substance: TENAPANOR HYDROCHLORIDE
     Indication: Constipation
     Dosage: UNK
     Route: 048
     Dates: start: 202209
  2. IBSRELA [Suspect]
     Active Substance: TENAPANOR HYDROCHLORIDE
     Indication: Gastrointestinal bacterial overgrowth
  3. IBSRELA [Suspect]
     Active Substance: TENAPANOR HYDROCHLORIDE
     Indication: Gastrointestinal bacterial overgrowth
  4. ASPIRIN [Concomitant]
     Active Substance: ASPIRIN
     Indication: Product used for unknown indication
     Dosage: UNK
  5. VITAMIN D3 [Concomitant]
     Active Substance: CHOLECALCIFEROL
     Indication: Product used for unknown indication
  6. ATORVASTATIN [Concomitant]
     Active Substance: ATORVASTATIN
     Indication: Coronary artery disease
  7. TRULANCE [Concomitant]
     Active Substance: PLECANATIDE
     Indication: Constipation
  8. TRULANCE [Concomitant]
     Active Substance: PLECANATIDE
     Indication: Gastrointestinal bacterial overgrowth
  9. TRULANCE [Concomitant]
     Active Substance: PLECANATIDE
     Indication: Gastrointestinal bacterial overgrowth
  10. MIRALAX [Concomitant]
     Active Substance: POLYETHYLENE GLYCOL 3350
     Indication: Product used for unknown indication
  11. LINZESS [Concomitant]
     Active Substance: LINACLOTIDE
     Indication: Product used for unknown indication
  12. MILK OF MAGNESIA [Concomitant]
     Active Substance: MAGNESIUM HYDROXIDE
     Indication: Product used for unknown indication

REACTIONS (4)
  - Tachyphylaxis [Unknown]
  - Therapeutic product effect variable [Unknown]
  - Off label use [Unknown]
  - Inappropriate schedule of product administration [Unknown]
